FAERS Safety Report 5642568-3 (Version None)
Quarter: 2008Q1

REPORT INFORMATION
  Report Type: 
  Country: None (occurrence: None)
  Receive Date: 20080228
  Receipt Date: 20080225
  Transmission Date: 20080703
  Serious: Yes (Life-Threatening, Hospitalization, Other)
  Sender: FDA-Public Use
  Company Number: US-ALLERGAN-0800904US

PATIENT
  Sex: Male
  Weight: 79 kg

DRUGS (19)
  1. BOTOX [Suspect]
     Indication: SALIVARY HYPERSECRETION
     Dosage: 100 UNITS, SINGLE
     Route: 050
     Dates: start: 20080124, end: 20080124
  2. LISINOPRIL [Concomitant]
     Indication: BLOOD PRESSURE
     Dosage: 10 MG, QAM
     Route: 050
     Dates: start: 20080118, end: 20080207
  3. LOPRESSOR [Concomitant]
     Indication: BLOOD PRESSURE
     Dosage: 25 MG, BID
     Route: 050
     Dates: start: 20080118, end: 20080125
  4. UNASYN [Concomitant]
     Indication: DRUG USE FOR UNKNOWN INDICATION
  5. IV FLUIDS [Concomitant]
     Indication: DRUG USE FOR UNKNOWN INDICATION
  6. NUTREN [Concomitant]
     Indication: DRUG USE FOR UNKNOWN INDICATION
  7. REGLAN [Concomitant]
     Indication: DRUG USE FOR UNKNOWN INDICATION
     Dosage: 10 MG, Q6HR
     Route: 042
     Dates: start: 20080123, end: 20080124
  8. HEP-LOCK [Concomitant]
     Indication: INTRAVENOUS CATHETER MANAGEMENT
     Dosage: 200 UNITS, PRN
     Route: 042
     Dates: start: 20080117, end: 20080207
  9. ACETAMINOPHEN [Concomitant]
     Indication: PAIN
     Dosage: 650 MG, UNK
     Route: 050
     Dates: start: 20080116, end: 20080207
  10. ACETAMINOPHEN [Concomitant]
     Indication: PYREXIA
  11. PAROXETINE HCL [Concomitant]
     Indication: DEPRESSION
     Dosage: 20 MG, QAM
     Route: 050
     Dates: start: 20080104, end: 20080207
  12. ATROVENT/ALBUTEROL [Concomitant]
     Indication: RESPIRATORY DISORDER
     Dosage: Q4H, PRN
     Route: 055
     Dates: start: 20071229, end: 20080207
  13. ESOMEPRAZOLE MAGNESIUM [Concomitant]
     Indication: PROPHYLAXIS
     Dosage: 40 MG, QAM
     Route: 042
     Dates: start: 20071229, end: 20080207
  14. IBUPROFEN [Concomitant]
     Indication: PAIN
     Dosage: 600-800 MG, PRN
     Route: 050
     Dates: start: 20071227, end: 20080207
  15. IBUPROFEN [Concomitant]
     Indication: PYREXIA
  16. NORMAL SALINE WITH POTASSIUM [Concomitant]
     Indication: FLUID REPLACEMENT
     Dosage: UNK, PRN
     Route: 042
     Dates: start: 20071226, end: 20080207
  17. SIMVASTATIN [Concomitant]
     Indication: HYPERCHOLESTEROLAEMIA
     Dosage: 10 MG, QHS
     Route: 048
     Dates: start: 20071225, end: 20080207
  18. ASPIRIN [Concomitant]
     Indication: PROPHYLAXIS
     Dosage: 325 MG, QAM
     Route: 048
     Dates: start: 20071225, end: 20080207
  19. FENTANYL [Concomitant]
     Indication: PAIN
     Dosage: 25-50 MCG, PRN
     Route: 042
     Dates: start: 20071223, end: 20080207

REACTIONS (2)
  - ATRIOVENTRICULAR BLOCK [None]
  - BRADYCARDIA [None]
